FAERS Safety Report 9740768 (Version 1)
Quarter: 2013Q4

REPORT INFORMATION
  Report Type: Spontaneous
  Country: US (occurrence: US)
  Receive Date: 20131209
  Receipt Date: 20131209
  Transmission Date: 20140711
  Serious: Yes (Hospitalization)
  Sender: FDA-Public Use
  Company Number: US-PFIZER INC-2013349940

PATIENT
  Age: 48 Year
  Sex: Female
  Weight: 97.5 kg

DRUGS (5)
  1. AROMASIN [Suspect]
     Indication: BREAST CANCER METASTATIC
     Dosage: 25 MG, 1X/DAY
     Route: 048
     Dates: start: 201306, end: 20131128
  2. AMLODIPINE [Concomitant]
     Dosage: 5 MG, 1X/DAY
  3. LIPITOR [Concomitant]
     Dosage: 20 MG, 1X/DAY
  4. AFINITOR [Concomitant]
     Dosage: 10 MG, 1X/DAY
  5. OXYCODONE [Concomitant]
     Indication: PAIN
     Dosage: 5 MG (EVERY SIX HOURS), AS NEEDED

REACTIONS (4)
  - Angioedema [Recovering/Resolving]
  - Pharyngeal oedema [Recovering/Resolving]
  - Local swelling [Recovering/Resolving]
  - Swelling face [Recovering/Resolving]
